FAERS Safety Report 16927249 (Version 1)
Quarter: 2019Q4

REPORT INFORMATION
  Report Type: Spontaneous
  Country: NP (occurrence: NP)
  Receive Date: 20191016
  Receipt Date: 20191016
  Transmission Date: 20200122
  Serious: Yes (Death, Hospitalization)
  Sender: FDA-Public Use
  Company Number: NP-TAKEDA-2018TUS024543

PATIENT
  Age: 75 Year
  Sex: Male

DRUGS (1)
  1. ICLUSIG [Suspect]
     Active Substance: PONATINIB
     Indication: CHRONIC MYELOID LEUKAEMIA
     Dosage: 45 MG, UNK
     Route: 065

REACTIONS (3)
  - Insomnia [Unknown]
  - Death [Fatal]
  - Paraesthesia [Unknown]

NARRATIVE: CASE EVENT DATE: 20191008
